FAERS Safety Report 4961665-9 (Version None)
Quarter: 2006Q2

REPORT INFORMATION
  Report Type: 
  Country: None (occurrence: None)
  Receive Date: 20060404
  Receipt Date: 20060323
  Transmission Date: 20061013
  Serious: Yes (Hospitalization)
  Sender: FDA-Public Use
  Company Number: JP-JNJFOC-20060306514

PATIENT
  Sex: Female

DRUGS (7)
  1. REMICADE [Suspect]
  2. REMICADE [Suspect]
  3. REMICADE [Suspect]
  4. REMICADE [Suspect]
  5. REMICADE [Suspect]
     Indication: CROHN'S DISEASE
  6. PENTASA [Concomitant]
     Route: 048
  7. LEUKERIN [Concomitant]
     Route: 048

REACTIONS (1)
  - PUSTULAR PSORIASIS [None]
